FAERS Safety Report 9537138 (Version 1)
Quarter: 2013Q3

REPORT INFORMATION
  Report Type: Spontaneous
  Country: JP (occurrence: JP)
  Receive Date: 20130919
  Receipt Date: 20130919
  Transmission Date: 20140515
  Serious: Yes (Hospitalization)
  Sender: FDA-Public Use
  Company Number: JP-JNJFOC-20130801235

PATIENT
  Age: 60 Year
  Sex: Female

DRUGS (4)
  1. SIMPONI [Suspect]
     Indication: PRODUCT USED FOR UNKNOWN INDICATION
     Route: 058
     Dates: start: 20111104
  2. METHOTREXATE [Suspect]
     Indication: PRODUCT USED FOR UNKNOWN INDICATION
     Route: 048
     Dates: start: 20080723, end: 20130626
  3. FOLIAMIN [Concomitant]
     Route: 065
  4. FAMOTIDINE [Concomitant]
     Route: 065

REACTIONS (1)
  - Interstitial lung disease [Recovered/Resolved]
